FAERS Safety Report 7356445-3 (Version None)
Quarter: 2011Q1

REPORT INFORMATION
  Report Type: 
  Country: None (occurrence: None)
  Receive Date: 20110316
  Receipt Date: 20110311
  Transmission Date: 20110831
  Serious: Yes (Other)
  Sender: FDA-Public Use
  Company Number: AU-ABBOTT-11P-008-0709571-00

PATIENT
  Sex: Female

DRUGS (4)
  1. FENOFIBRATE [Suspect]
     Indication: METABOLIC DISORDER
     Dosage: 145 MG DAILLY
     Route: 048
     Dates: start: 20080903, end: 20100601
  2. ASPIRIN [Concomitant]
     Indication: PRODUCT USED FOR UNKNOWN INDICATION
  3. METFORMIN HYDROCHLORIDE [Concomitant]
     Indication: PRODUCT USED FOR UNKNOWN INDICATION
  4. ATACAND HCT [Concomitant]
     Indication: PRODUCT USED FOR UNKNOWN INDICATION
     Dosage: 16/12.5

REACTIONS (3)
  - WEIGHT DECREASED [None]
  - LIVER INJURY [None]
  - LIVER FUNCTION TEST ABNORMAL [None]
